FAERS Safety Report 11653385 (Version 2)
Quarter: 2016Q3

REPORT INFORMATION
  Report Type: Report from Study
  Country: US (occurrence: US)
  Receive Date: 20151022
  Receipt Date: 20160829
  Transmission Date: 20161109
  Serious: Yes (Other)
  Sender: FDA-Public Use
  Company Number: US-BAXALTA-2015BLT002285

PATIENT
  Sex: Female

DRUGS (2)
  1. GAMMAGARD LIQUID [Suspect]
     Active Substance: HUMAN IMMUNOGLOBULIN G
     Indication: PRIMARY IMMUNODEFICIENCY SYNDROME
     Dosage: UNK UNK, 2X A MONTH
     Route: 042
  2. GAMMAGARD LIQUID [Suspect]
     Active Substance: HUMAN IMMUNOGLOBULIN G
     Dosage: UNK UNK, 2X A MONTH
     Route: 042
     Dates: start: 20160806

REACTIONS (9)
  - Regurgitation [Not Recovered/Not Resolved]
  - Inability to afford medication [Not Recovered/Not Resolved]
  - Abnormal loss of weight [Not Recovered/Not Resolved]
  - Malaise [Not Recovered/Not Resolved]
  - Anal incontinence [Not Recovered/Not Resolved]
  - Anaemia [Recovering/Resolving]
  - Neuropathy peripheral [Recovering/Resolving]
  - Systemic lupus erythematosus [Recovering/Resolving]
  - Nausea [Not Recovered/Not Resolved]
